FAERS Safety Report 22141174 (Version 2)
Quarter: 2023Q2

REPORT INFORMATION
  Report Type: Spontaneous
  Country: GB (occurrence: GB)
  Receive Date: 20230327
  Receipt Date: 20230406
  Transmission Date: 20230721
  Serious: Yes (Hospitalization)
  Sender: FDA-Public Use
  Company Number: GB-PFIZER INC-202300127863

PATIENT
  Age: 30 Year
  Sex: Female

DRUGS (6)
  1. METHOTREXATE SODIUM [Suspect]
     Active Substance: METHOTREXATE SODIUM
     Indication: Choriocarcinoma
     Dosage: 1000 MG/M2, 4 CYCLIE, 2 BEING GIVEN IN WEEK 1 (ARM A)
  2. METHOTREXATE SODIUM [Suspect]
     Active Substance: METHOTREXATE SODIUM
     Dosage: 800 MG/M2, 4 CYCLIE, 2 BEING GIVEN IN WEEK 1 (ARM A)
  3. VINCRISTINE SULFATE [Suspect]
     Active Substance: VINCRISTINE SULFATE
     Indication: Choriocarcinoma
     Dosage: 0.8 MG/M2,4 CYCLIE, IN WEEK 2 (ARM B)
  4. CYCLOPHOSPHAMIDE [Suspect]
     Active Substance: CYCLOPHOSPHAMIDE
     Indication: Choriocarcinoma
     Dosage: 600 MG/M2, 4 CYCLES, IN WEEK 2 (ARM B)
  5. ETOPOSIDE [Suspect]
     Active Substance: ETOPOSIDE
     Indication: Choriocarcinoma
     Dosage: 100 MG/M2,DAYS 1-2, 4 CYCLES,IN WEEK 1 (ARM A)
  6. ACTINOMYCIN D [Suspect]
     Active Substance: DACTINOMYCIN
     Indication: Choriocarcinoma
     Dosage: 0.5 MG, DAYS 1-2, 4 CYCLES, IN WEEK 1 (ARM A)

REACTIONS (1)
  - Mucosal inflammation [Unknown]
